FAERS Safety Report 11277511 (Version 1)
Quarter: 2015Q3

REPORT INFORMATION
  Report Type: Spontaneous
  Country: AU (occurrence: AU)
  Receive Date: 20150716
  Receipt Date: 20150716
  Transmission Date: 20151125
  Serious: Yes (Hospitalization, Other)
  Sender: FDA-Public Use
  Company Number: PHHY2015AU083794

PATIENT
  Age: 33 Year
  Sex: Female

DRUGS (1)
  1. CLARITHROMYCIN. [Suspect]
     Active Substance: CLARITHROMYCIN
     Indication: SINUSITIS
     Route: 065

REACTIONS (8)
  - Staphylococcal bacteraemia [Recovered/Resolved]
  - Blister [Recovered/Resolved]
  - Toxic epidermal necrolysis [Recovered/Resolved]
  - Foreign body sensation in eyes [Recovered/Resolved]
  - Pharyngitis [Recovered/Resolved]
  - Pseudomonas infection [Recovered/Resolved]
  - Vulvar erosion [Recovered/Resolved]
  - Macule [Recovered/Resolved]
